FAERS Safety Report 9191940 (Version 1)
Quarter: 2013Q1

REPORT INFORMATION
  Report Type: Spontaneous
  Country: US (occurrence: US)
  Receive Date: 20130327
  Receipt Date: 20130327
  Transmission Date: 20140127
  Serious: No
  Sender: FDA-Public Use
  Company Number: US-BIOGENIDEC-2013BI027615

PATIENT
  Sex: Male
  Weight: 65 kg

DRUGS (3)
  1. AVONEX [Suspect]
     Indication: MULTIPLE SCLEROSIS
     Route: 030
     Dates: start: 20120125
  2. COPAXONE [Concomitant]
  3. KLONOPIN [Concomitant]
     Route: 048

REACTIONS (2)
  - Drug intolerance [Unknown]
  - Vitamin D deficiency [Unknown]
